FAERS Safety Report 19407385 (Version 1)
Quarter: 2021Q2

REPORT INFORMATION
  Report Type: Spontaneous
  Country: JP (occurrence: JP)
  Receive Date: 20210611
  Receipt Date: 20210611
  Transmission Date: 20210717
  Serious: Yes (Death)
  Sender: FDA-Public Use
  Company Number: JP-BAUSCH-BL-2021-020820

PATIENT

DRUGS (1)
  1. LUMICEF SUBCUTANEOUS INJECTION SYRINGE 210 (BRODALUMAB) [Suspect]
     Active Substance: BRODALUMAB
     Indication: PSORIASIS
     Dosage: STRENTGH: 210 MG/1.5 ML
     Route: 058

REACTIONS (1)
  - Dyspnoea [Fatal]
